FAERS Safety Report 5837712-9 (Version None)
Quarter: 2008Q3

REPORT INFORMATION
  Report Type: 
  Country: None (occurrence: None)
  Receive Date: 20080807
  Receipt Date: 20080731
  Transmission Date: 20090109
  Serious: Yes (Death)
  Sender: FDA-Public Use
  Company Number: US-MERCK-0808USA00349

PATIENT
  Age: 17 Year
  Sex: Male

DRUGS (1)
  1. SINGULAIR [Suspect]
     Route: 048
     Dates: start: 20020101

REACTIONS (4)
  - COMPLETED SUICIDE [None]
  - DEPRESSION [None]
  - SLEEP DISORDER [None]
  - SOCIAL AVOIDANT BEHAVIOUR [None]
